FAERS Safety Report 8305925-2 (Version None)
Quarter: 2012Q1

REPORT INFORMATION
  Report Type: 
  Country: None (occurrence: None)
  Receive Date: 20120326
  Receipt Date: 20111222
  Transmission Date: 20120608
  Serious: Yes (Other)
  Sender: FDA-Public Use
  Company Number: PHEH2011US012405

PATIENT
  Age: 51 Year
  Sex: Female

DRUGS (2)
  1. VIVELLE-DOT [Suspect]
     Dosage: 0.05 MG, TRANSDERMAL ; 0.075 MG, QW2, TRANSDERMAL ; 0.05 MG, TRANSDERMAL
     Route: 062
  2. VAGIFEM [Concomitant]

REACTIONS (4)
  - VAGINAL HAEMORRHAGE [None]
  - APPLICATION SITE RASH [None]
  - WRONG TECHNIQUE IN DRUG USAGE PROCESS [None]
  - HORMONE LEVEL ABNORMAL [None]
